APPROVED DRUG PRODUCT: EMBELINE
Active Ingredient: CLOBETASOL PROPIONATE
Strength: 0.05%
Dosage Form/Route: GEL;TOPICAL
Application: A076141 | Product #001
Applicant: HIKMA PHARMACEUTICALS USA INC
Approved: Apr 12, 2002 | RLD: No | RS: No | Type: DISCN